FAERS Safety Report 16432386 (Version 1)
Quarter: 2019Q3

REPORT INFORMATION
  Report Type: Spontaneous
  Country: US (occurrence: US)
  Receive Date: 20190614
  Receipt Date: 20190614
  Transmission Date: 20191004
  Serious: No
  Sender: FDA-Public Use
  Company Number: None

PATIENT
  Age: 30 Year
  Sex: Female
  Weight: 70.65 kg

DRUGS (1)
  1. BUPRENORPHINE-NALOXONE FILMS [Suspect]
     Active Substance: BUPRENORPHINE HYDROCHLORIDE\NALOXONE HYDROCHLORIDE
     Indication: DRUG USE DISORDER
     Route: 060
     Dates: start: 20190501

REACTIONS (3)
  - Pain [None]
  - Peripheral swelling [None]
  - Oedema peripheral [None]

NARRATIVE: CASE EVENT DATE: 20190521
